FAERS Safety Report 7968789-2 (Version None)
Quarter: 2011Q4

REPORT INFORMATION
  Report Type: 
  Country: None (occurrence: None)
  Receive Date: 20111209
  Receipt Date: 20111205
  Transmission Date: 20120403
  Serious: Yes (Hospitalization, Other)
  Sender: FDA-Public Use
  Company Number: GB-ABBOTT-11P-167-0881333-00

PATIENT
  Sex: Female

DRUGS (2)
  1. IBUPROFEN [Suspect]
     Indication: NASOPHARYNGITIS
     Route: 065
  2. PSEUDOEPHEDRINE HCL [Suspect]
     Indication: NASOPHARYNGITIS
     Route: 065

REACTIONS (2)
  - ANAPHYLACTIC REACTION [None]
  - PRODUCT FORMULATION ISSUE [None]
